FAERS Safety Report 7914202-0 (Version None)
Quarter: 2011Q4

REPORT INFORMATION
  Report Type: 
  Country: None (occurrence: None)
  Receive Date: 20111115
  Receipt Date: 20111107
  Transmission Date: 20120403
  Serious: Yes (Other)
  Sender: FDA-Public Use
  Company Number: IE-JNJFOC-20110908881

PATIENT
  Age: 54 Year
  Sex: Female

DRUGS (9)
  1. HALOPERIDOL DECANOATE [Suspect]
     Indication: SCHIZOPHRENIA
     Route: 030
  2. TRIFLUOPERAZINE HCL [Concomitant]
     Indication: PSYCHOTIC DISORDER
     Route: 065
  3. LAMISIL [Concomitant]
     Route: 065
  4. VALPROATE SODIUM [Concomitant]
     Route: 065
  5. PALIPERIDONE [Suspect]
     Route: 030
     Dates: start: 20110826, end: 20110902
  6. BIPERIDEN HYDROCHLORIDE TAB [Concomitant]
     Indication: EXTRAPYRAMIDAL DISORDER
     Route: 048
  7. PALIPERIDONE [Suspect]
     Indication: SCHIZOPHRENIA
     Route: 030
     Dates: start: 20110902
  8. LAMOTRIGINE [Concomitant]
     Indication: AFFECTIVE DISORDER
     Route: 065
  9. NEXIUM [Concomitant]
     Indication: GASTROOESOPHAGEAL REFLUX DISEASE
     Route: 065

REACTIONS (3)
  - SEDATION [None]
  - SOMNOLENCE [None]
  - INCORRECT DOSE ADMINISTERED [None]
